FAERS Safety Report 6569063-1 (Version None)
Quarter: 2010Q1

REPORT INFORMATION
  Report Type: 
  Country: None (occurrence: None)
  Receive Date: 20100203
  Receipt Date: 20100126
  Transmission Date: 20100710
  Serious: Yes (Other)
  Sender: FDA-Public Use
  Company Number: CA-JNJCH-2010001698

PATIENT
  Age: 50 Year
  Sex: Male

DRUGS (1)
  1. ROLAIDS TAB [Suspect]
     Indication: GASTROOESOPHAGEAL REFLUX DISEASE
     Dosage: TEXT:20-30 DAILY FOR TWO MONTHS
     Route: 048

REACTIONS (7)
  - ABDOMINAL DISCOMFORT [None]
  - GASTRIC DISORDER [None]
  - LOSS OF EMPLOYMENT [None]
  - OFF LABEL USE [None]
  - OVERDOSE [None]
  - PRODUCT ODOUR ABNORMAL [None]
  - VOMITING [None]
